FAERS Safety Report 24253725 (Version 1)
Quarter: 2024Q3

REPORT INFORMATION
  Report Type: Spontaneous
  Country: US (occurrence: US)
  Receive Date: 20240827
  Receipt Date: 20240827
  Transmission Date: 20241017
  Serious: Yes (Hospitalization, Other)
  Sender: ACCORD
  Company Number: US-Accord-442547

PATIENT
  Age: 58 Year
  Sex: Male

DRUGS (2)
  1. FINGOLIMOD [Suspect]
     Active Substance: FINGOLIMOD
     Indication: Multiple sclerosis
     Dosage: EVERY OTHER DAY
  2. ELASOMERAN [Suspect]
     Active Substance: ELASOMERAN
     Indication: COVID-19 immunisation
     Dosage: (MRNA-1273). 3 DOSE (MARCH, APRIL, AND SEPTEMBER)
     Dates: start: 2021

REACTIONS (2)
  - Histoplasmosis disseminated [Recovered/Resolved]
  - Lymphopenia [Recovered/Resolved]
